FAERS Safety Report 8613562-5 (Version None)
Quarter: 2012Q3

REPORT INFORMATION
  Report Type: 
  Country: None (occurrence: None)
  Receive Date: 20120823
  Receipt Date: 20120719
  Transmission Date: 20120928
  Serious: No
  Sender: FDA-Public Use
  Company Number: US-009507513-1207USA008410

PATIENT

DRUGS (1)
  1. NEXPLANON [Suspect]
     Dosage: 3 YEAR IMPLANT
     Route: 059
     Dates: start: 20120718

REACTIONS (2)
  - DEVICE DIFFICULT TO USE [None]
  - NO ADVERSE EVENT [None]
